FAERS Safety Report 9868015 (Version 3)
Quarter: 2014Q1

REPORT INFORMATION
  Report Type: Report from Study
  Country: JP (occurrence: JP)
  Receive Date: 20140204
  Receipt Date: 20140228
  Transmission Date: 20141002
  Serious: Yes (Hospitalization)
  Sender: FDA-Public Use
  Company Number: JP-EISAI INC-E2020-13113-CLI-JP

PATIENT
  Age: 85 Year
  Sex: Male
  Weight: 56 kg

DRUGS (11)
  1. DONEPEZIL [Suspect]
     Indication: DEMENTIA ALZHEIMER^S TYPE
     Dosage: DOUBLE-BLIND
     Route: 048
     Dates: start: 20130324, end: 20130420
  2. DONEPEZIL [Interacting]
     Dosage: DOUBLE-BLIND
     Route: 048
     Dates: start: 20130421, end: 20131012
  3. DONEPEZIL [Interacting]
     Dosage: DOUBLE-BLIND
     Route: 048
     Dates: start: 20131013, end: 20131101
  4. MEMARY [Interacting]
     Indication: DEMENTIA ALZHEIMER^S TYPE
     Route: 048
     Dates: start: 20110731, end: 20131018
  5. MEMARY [Interacting]
     Route: 048
     Dates: start: 20131019
  6. EVIPROSTAT [Concomitant]
     Indication: BENIGN PROSTATIC HYPERPLASIA
     Route: 048
     Dates: start: 19951224
  7. BUFFERIN [Concomitant]
     Indication: THROMBOSIS PROPHYLAXIS
     Route: 048
     Dates: start: 20070622
  8. BUP-4 [Concomitant]
     Indication: BENIGN PROSTATIC HYPERPLASIA
     Route: 048
     Dates: start: 20070628
  9. PROKREIN [Concomitant]
     Indication: DIZZINESS
     Route: 048
     Dates: start: 20080512
  10. BLOPRESS [Concomitant]
     Indication: HYPERTENSION
     Route: 048
     Dates: start: 20080729
  11. LAXOBERON [Concomitant]
     Indication: CONSTIPATION
     Route: 048
     Dates: start: 20120116

REACTIONS (2)
  - Restlessness [Recovered/Resolved]
  - Drug interaction [Recovered/Resolved]
